FAERS Safety Report 6488948-8 (Version None)
Quarter: 2009Q4

REPORT INFORMATION
  Report Type: 
  Country: None (occurrence: None)
  Receive Date: 20091210
  Receipt Date: 20090916
  Transmission Date: 20100525
  Serious: No
  Sender: FDA-Public Use
  Company Number: US-AMGEN-KDL364892

PATIENT
  Sex: Female

DRUGS (10)
  1. ENBREL [Suspect]
     Indication: PSORIASIS
     Route: 058
     Dates: start: 20090601
  2. LIPITOR [Concomitant]
  3. SERTRALINE HCL [Concomitant]
  4. NAPROXEN [Concomitant]
  5. LEVOXYL [Concomitant]
  6. GLUCOSAMINE [Concomitant]
  7. ASCORBIC ACID [Concomitant]
  8. MULTI-VITAMINS [Concomitant]
  9. FISH OIL [Concomitant]
  10. CALCIUM [Concomitant]

REACTIONS (1)
  - WHITE BLOOD CELL COUNT DECREASED [None]
